FAERS Safety Report 20595775 (Version 1)
Quarter: 2022Q1

REPORT INFORMATION
  Report Type: Spontaneous
  Country: US (occurrence: US)
  Receive Date: 20220315
  Receipt Date: 20220315
  Transmission Date: 20220423
  Serious: Yes (Disabling, Other)
  Sender: FDA-Public Use
  Company Number: US-MYLANLABS-2022M1019640

PATIENT
  Sex: Female

DRUGS (4)
  1. MYCOPHENOLATE MOFETIL [Suspect]
     Active Substance: MYCOPHENOLATE MOFETIL
     Indication: Relapsing-remitting multiple sclerosis
     Dosage: UNK
     Route: 065
  2. FINGOLIMOD [Suspect]
     Active Substance: FINGOLIMOD
     Indication: Relapsing-remitting multiple sclerosis
     Dosage: UNK
     Route: 065
  3. AZATHIOPRINE [Suspect]
     Active Substance: AZATHIOPRINE
     Indication: Relapsing multiple sclerosis
     Dosage: UNK
     Route: 065
  4. INTERFERON BETA-1A [Suspect]
     Active Substance: INTERFERON BETA-1A
     Indication: Relapsing multiple sclerosis
     Dosage: UNK UNK, QW; WEEKLY
     Route: 030

REACTIONS (5)
  - Deafness neurosensory [Recovering/Resolving]
  - Herpes simplex meningitis [Recovered/Resolved]
  - Optic neuritis [Unknown]
  - Condition aggravated [Unknown]
  - Off label use [Unknown]
